FAERS Safety Report 6194569-7 (Version None)
Quarter: 2009Q2

REPORT INFORMATION
  Report Type: 
  Country: None (occurrence: None)
  Receive Date: 20090519
  Receipt Date: 20090511
  Transmission Date: 20091009
  Serious: Yes (Other)
  Sender: FDA-Public Use
  Company Number: GB-ROCHE-630906

PATIENT
  Sex: Female
  Weight: 144 kg

DRUGS (2)
  1. XENICAL [Suspect]
     Indication: WEIGHT CONTROL
     Route: 048
     Dates: start: 20080925
  2. METFORMIN HCL [Concomitant]
     Indication: POLYCYSTIC OVARIES
     Route: 048

REACTIONS (2)
  - BACK PAIN [None]
  - HYPOTHYROIDISM [None]
